FAERS Safety Report 7523261-9 (Version None)
Quarter: 2011Q2

REPORT INFORMATION
  Report Type: 
  Country: None (occurrence: None)
  Receive Date: 20110603
  Receipt Date: 20110519
  Transmission Date: 20111010
  Serious: Yes (Death, Hospitalization)
  Sender: FDA-Public Use
  Company Number: A0790249A

PATIENT
  Age: 53 Year
  Sex: Female

DRUGS (1)
  1. AVANDIA [Suspect]
     Indication: DIABETES MELLITUS
     Route: 048
     Dates: start: 20040801, end: 20041201

REACTIONS (6)
  - MYOCARDIAL INFARCTION [None]
  - RENAL FAILURE [None]
  - MYOCARDIAL ISCHAEMIA [None]
  - CEREBROVASCULAR ACCIDENT [None]
  - LOWER GASTROINTESTINAL HAEMORRHAGE [None]
  - CARDIAC FAILURE CONGESTIVE [None]
